FAERS Safety Report 8205499-0 (Version None)
Quarter: 2012Q1

REPORT INFORMATION
  Report Type: 
  Country: None (occurrence: None)
  Receive Date: 20120313
  Receipt Date: 20120306
  Transmission Date: 20120608
  Serious: Yes (Death, Life-Threatening, Hospitalization)
  Sender: FDA-Public Use
  Company Number: DE-JNJFOC-20120210534

PATIENT
  Age: 70 Year
  Sex: Male

DRUGS (14)
  1. AMLODIPINE [Suspect]
     Indication: PRODUCT USED FOR UNKNOWN INDICATION
     Route: 048
     Dates: end: 20111121
  2. TILIDIN [Suspect]
     Route: 048
     Dates: start: 20111122
  3. DOMINAL [Suspect]
     Indication: PRODUCT USED FOR UNKNOWN INDICATION
     Route: 048
     Dates: start: 20111120, end: 20111120
  4. IBUPROFEN [Concomitant]
     Route: 048
     Dates: end: 20111121
  5. RISPERDAL [Suspect]
     Route: 048
     Dates: end: 20111117
  6. MIRTAZAPINE [Suspect]
     Indication: PRODUCT USED FOR UNKNOWN INDICATION
     Route: 048
     Dates: end: 20111117
  7. AN UNKNOWN MEDICATION [Concomitant]
     Route: 042
     Dates: start: 20111121, end: 20111121
  8. MELPERON [Suspect]
     Indication: PRODUCT USED FOR UNKNOWN INDICATION
     Route: 048
     Dates: start: 20111118, end: 20111121
  9. PANTOPRAZOLE [Concomitant]
     Route: 048
     Dates: start: 20111118, end: 20111121
  10. RISPERDAL [Suspect]
     Indication: PRODUCT USED FOR UNKNOWN INDICATION
     Route: 048
     Dates: start: 20111118, end: 20111121
  11. TILIDIN [Suspect]
     Indication: PRODUCT USED FOR UNKNOWN INDICATION
     Route: 048
     Dates: end: 20111121
  12. MELPERON [Suspect]
     Route: 048
     Dates: end: 20111117
  13. MIRTAZAPINE [Suspect]
     Route: 048
     Dates: start: 20111118, end: 20111121
  14. METFORMIN HCL [Concomitant]
     Route: 048
     Dates: end: 20111121

REACTIONS (2)
  - PNEUMONIA [None]
  - HALLUCINATION [None]
